FAERS Safety Report 15276623 (Version 1)
Quarter: 2018Q3

REPORT INFORMATION
  Report Type: Spontaneous
  Country: US (occurrence: US)
  Receive Date: 20180814
  Receipt Date: 20180814
  Transmission Date: 20181010
  Serious: No
  Sender: FDA-Public Use
  Company Number: US-SUN PHARMACEUTICAL INDUSTRIES LTD-2017US-149537

PATIENT
  Age: 46 Year
  Sex: Male
  Weight: 102.4 kg

DRUGS (1)
  1. SUMATRIPTAN. [Suspect]
     Active Substance: SUMATRIPTAN
     Indication: MIGRAINE
     Dosage: UNK UNK, PRN
     Route: 065
     Dates: start: 20170720

REACTIONS (2)
  - Device malfunction [Unknown]
  - Expired device used [Unknown]

NARRATIVE: CASE EVENT DATE: 20170720
